FAERS Safety Report 6083715-1 (Version None)
Quarter: 2009Q1

REPORT INFORMATION
  Report Type: 
  Country: None (occurrence: None)
  Receive Date: 20090219
  Receipt Date: 20090206
  Transmission Date: 20090719
  Serious: Yes (Death)
  Sender: FDA-Public Use
  Company Number: US-PFIZER INC-2009168527

PATIENT
  Sex: Female

DRUGS (2)
  1. NEURONTIN [Suspect]
  2. XANAX [Suspect]

REACTIONS (1)
  - DEATH [None]
